FAERS Safety Report 20157209 (Version 1)
Quarter: 2021Q4

REPORT INFORMATION
  Report Type: Spontaneous
  Country: US (occurrence: US)
  Receive Date: 20211207
  Receipt Date: 20211207
  Transmission Date: 20220303
  Serious: No
  Sender: FDA-Public Use
  Company Number: US-IBSA PHARMA INC.-2020IBS000215

PATIENT

DRUGS (2)
  1. TIROSINT [Suspect]
     Active Substance: LEVOTHYROXINE SODIUM
     Indication: Hypothyroidism
     Dosage: 137 ?G, UNK
     Route: 065
     Dates: start: 202007, end: 2020
  2. TIROSINT [Suspect]
     Active Substance: LEVOTHYROXINE SODIUM
     Dosage: 112 ?G, UNK
     Route: 065
     Dates: start: 202010, end: 20201031

REACTIONS (4)
  - Abnormal sensation in eye [Recovered/Resolved]
  - Visual impairment [Recovered/Resolved]
  - Cardiac flutter [Recovered/Resolved]
  - Intentional dose omission [Unknown]

NARRATIVE: CASE EVENT DATE: 20200101
